FAERS Safety Report 26195915 (Version 1)
Quarter: 2025Q4

REPORT INFORMATION
  Report Type: Spontaneous
  Country: JP (occurrence: JP)
  Receive Date: 20251224
  Receipt Date: 20251224
  Transmission Date: 20260117
  Serious: Yes (Other)
  Sender: RANBAXY
  Company Number: JP-SUN PHARMACEUTICAL INDUSTRIES LTD-2025R1-542410

PATIENT
  Age: 76 Year
  Sex: Male

DRUGS (1)
  1. TEGRETOL [Suspect]
     Active Substance: CARBAMAZEPINE
     Indication: Headache
     Dosage: UNK
     Route: 048

REACTIONS (2)
  - Drug reaction with eosinophilia and systemic symptoms [Unknown]
  - Cytomegalovirus test positive [Unknown]
